FAERS Safety Report 8973923 (Version 1)
Quarter: 2012Q4

REPORT INFORMATION
  Report Type: 
  Country: SE (occurrence: SE)
  Receive Date: 20121218
  Receipt Date: 20121218
  Transmission Date: 20130627
  Serious: Yes (Other)
  Sender: FDA-Public Use
  Company Number: SE-GLAXOSMITHKLINE-B0853342A

PATIENT
  Age: 63 Year
  Sex: Female

DRUGS (5)
  1. REQUIP [Suspect]
     Indication: PARKINSON^S DISEASE
     Dosage: 8MG per day
     Route: 065
     Dates: start: 201211
  2. MADOPARK [Concomitant]
  3. INDIVINA [Concomitant]
  4. SOLVEZINK [Concomitant]
  5. MULTIVITAMIN [Concomitant]

REACTIONS (4)
  - Dizziness [Not Recovered/Not Resolved]
  - Parkinson^s disease [Unknown]
  - Balance disorder [Unknown]
  - Vertigo [Unknown]
